FAERS Safety Report 5776247-9 (Version None)
Quarter: 2008Q2

REPORT INFORMATION
  Report Type: 
  Country: None (occurrence: None)
  Receive Date: 20080616
  Receipt Date: 20080603
  Transmission Date: 20081010
  Serious: Yes (Other)
  Sender: FDA-Public Use
  Company Number: 49034

PATIENT
  Age: 32 Year
  Sex: Female
  Weight: 72.5755 kg

DRUGS (1)
  1. DICYCLOMINE HCI INJ. USP 2ML/VIAL 10MG/ML-BEDFORD LABS, INC. [Suspect]
     Indication: IRRITABLE BOWEL SYNDROME
     Dosage: 20MG IV
     Route: 042
     Dates: start: 20080603

REACTIONS (1)
  - MEDICATION ERROR [None]
